FAERS Safety Report 8190069 (Version 2)
Quarter: 2012Q4

REPORT INFORMATION
  Report Type: 
  Country: FR (occurrence: FR)
  Receive Date: 20111019
  Receipt Date: 20121116
  Transmission Date: 20130627
  Serious: Yes (Hospitalization)
  Sender: FDA-Public Use
  Company Number: FR-ELI_LILLY_AND_COMPANY-FR201110001162

PATIENT
  Age: 73 Year
  Sex: Female
  Weight: 62 kg

DRUGS (2)
  1. FORSTEO [Suspect]
     Indication: OSTEOPOROSIS
     Dosage: 20 ug, qd
     Route: 058
     Dates: start: 20110913
  2. UVEDOSE [Concomitant]
     Dosage: 1 DF, other (3 months)

REACTIONS (2)
  - Cataract operation [Not Recovered/Not Resolved]
  - Vision blurred [Not Recovered/Not Resolved]
